FAERS Safety Report 23888794 (Version 1)
Quarter: 2024Q2

REPORT INFORMATION
  Report Type: Spontaneous
  Country: US (occurrence: US)
  Receive Date: 20240523
  Receipt Date: 20240523
  Transmission Date: 20240716
  Serious: Yes (Other)
  Sender: FDA-Public Use
  Company Number: US-DRL-USA-LIT/USA/24/0007408

PATIENT
  Age: 33 Year
  Sex: Male

DRUGS (3)
  1. DOXYCYCLINE [Suspect]
     Active Substance: DOXYCYCLINE\DOXYCYCLINE HYCLATE
     Indication: Leptospirosis
     Dosage: DOXYCYCLINE 100MG TWICE DAILY FOR 14?DAYS.
     Route: 048
  2. PREDNISONE [Concomitant]
     Active Substance: PREDNISONE
     Indication: Uveitis
     Dosage: HIGH-DOSE ORAL PREDNISONE
     Route: 048
  3. RITUXIMAB [Concomitant]
     Active Substance: RITUXIMAB
     Indication: Uveitis
     Dosage: HIGH-DOSE ORAL PREDNISONE

REACTIONS (1)
  - Drug ineffective for unapproved indication [Unknown]
